FAERS Safety Report 5976834-9 (Version None)
Quarter: 2008Q4

REPORT INFORMATION
  Report Type: 
  Country: None (occurrence: None)
  Receive Date: 20081203
  Receipt Date: 20080214
  Transmission Date: 20090506
  Serious: No
  Sender: FDA-Public Use
  Company Number: US-AMGEN-KDL265454

PATIENT
  Sex: Male

DRUGS (10)
  1. ENBREL [Suspect]
     Indication: PSORIASIS
     Dates: start: 20080101, end: 20080201
  2. ACTOS [Concomitant]
  3. ASPIRIN [Concomitant]
  4. HYDROCHLOROTHIAZIDE [Concomitant]
  5. NITROGLYCERIN [Concomitant]
  6. METFORMIN HCL [Concomitant]
  7. QUINAPRIL [Concomitant]
  8. TOPRAL [Concomitant]
  9. LANTUS [Concomitant]
  10. CRESTOR [Concomitant]

REACTIONS (2)
  - DYSPNOEA [None]
  - OEDEMA PERIPHERAL [None]
